FAERS Safety Report 7263697-7 (Version None)
Quarter: 2011Q1

REPORT INFORMATION
  Report Type: 
  Country: None (occurrence: None)
  Receive Date: 20110130
  Receipt Date: 20101206
  Transmission Date: 20110831
  Serious: No
  Sender: FDA-Public Use
  Company Number: US-ABBOTT-10P-163-0689758-00

PATIENT
  Age: 46 Year
  Sex: Male

DRUGS (4)
  1. HUMIRA [Suspect]
     Indication: CROHN'S DISEASE
     Dates: start: 20101001, end: 20101201
  2. DOXEPIN HCL [Concomitant]
     Indication: FATIGUE
     Dosage: BEDTIME
  3. PREDNISONE [Concomitant]
     Indication: CROHN'S DISEASE
     Dosage: DAILY
  4. SERAX [Concomitant]
     Indication: INSOMNIA
     Dosage: AT BEDTIME

REACTIONS (2)
  - CHILLS [None]
  - PYREXIA [None]
